FAERS Safety Report 8207495-6 (Version None)
Quarter: 2012Q1

REPORT INFORMATION
  Report Type: 
  Country: None (occurrence: None)
  Receive Date: 20120314
  Receipt Date: 20120306
  Transmission Date: 20120608
  Serious: Yes (Hospitalization)
  Sender: FDA-Public Use
  Company Number: FR-B.I. PHARMACEUTICALS,INC./RIDGEFIELD-2012-FF-00276FF

PATIENT
  Sex: Male
  Weight: 3.06 kg

DRUGS (2)
  1. CATAPRES [Suspect]
     Indication: MATERNAL EXPOSURE DURING PREGNANCY
     Route: 064
     Dates: end: 20120116
  2. CATAPRES [Suspect]
     Indication: EXPOSURE DURING BREAST FEEDING
     Route: 063
     Dates: start: 20120116, end: 20120125

REACTIONS (8)
  - CONVULSION [None]
  - RESPIRATORY DISORDER [None]
  - CLONIC CONVULSION [None]
  - OXYGEN SATURATION DECREASED [None]
  - FEEDING DISORDER NEONATAL [None]
  - CYANOSIS [None]
  - SOMNOLENCE [None]
  - HYPOGLYCAEMIA [None]
